FAERS Safety Report 24207833 (Version 2)
Quarter: 2024Q3

REPORT INFORMATION
  Report Type: Spontaneous
  Country: DE (occurrence: DE)
  Receive Date: 20240814
  Receipt Date: 20240821
  Transmission Date: 20241017
  Serious: Yes (Other)
  Sender: ESPERION THERAPEUTICS
  Company Number: None

PATIENT
  Age: 77 Year
  Sex: Female
  Weight: 74 kg

DRUGS (8)
  1. BEMPEDOIC ACID [Suspect]
     Active Substance: BEMPEDOIC ACID
     Indication: Blood cholesterol increased
     Dosage: 1 UNK, QD
     Route: 048
     Dates: start: 20240320, end: 20240613
  2. LEQVIO [Concomitant]
     Active Substance: INCLISIRAN SODIUM
     Indication: Blood cholesterol increased
     Dosage: 248 MG, ONCE EVERY 6 MO, SYRINGE
     Route: 065
  3. GINKGO [Concomitant]
     Active Substance: GINKGO
     Indication: Product used for unknown indication
     Dosage: 240 MG, QD
     Route: 065
  4. DERMOXIN [TOLNAFTATE] [Concomitant]
     Indication: Lichen sclerosus
     Dosage: 1 DF, ONCE EVERY 2 WK
     Route: 065
  5. ENALAPRIL [Concomitant]
     Active Substance: ENALAPRIL
     Indication: Product used for unknown indication
     Dosage: 20 MG, QD
  6. LEVOTHYROXINE SODIUM [Concomitant]
     Active Substance: LEVOTHYROXINE SODIUM
     Indication: Product used for unknown indication
     Dosage: 112 UG, QD
     Route: 065
  7. NEBIVOLOL [Concomitant]
     Active Substance: NEBIVOLOL
     Indication: Product used for unknown indication
     Dosage: 5 MG, QD
     Route: 065
  8. ASPIRIN [Concomitant]
     Active Substance: ASPIRIN
     Indication: Product used for unknown indication
     Dosage: 100 MG, QD
     Route: 065

REACTIONS (8)
  - Mental impairment [Recovered/Resolved]
  - Tendon pain [Recovering/Resolving]
  - Muscular weakness [Recovering/Resolving]
  - Speech disorder [Recovered/Resolved]
  - Myalgia [Recovering/Resolving]
  - Aphasia [Recovered/Resolved]
  - Mobility decreased [Recovering/Resolving]
  - Joint instability [Recovering/Resolving]

NARRATIVE: CASE EVENT DATE: 20240603
